FAERS Safety Report 21204775 (Version 6)
Quarter: 2022Q4

REPORT INFORMATION
  Report Type: Report from Study
  Country: US (occurrence: US)
  Receive Date: 20220812
  Receipt Date: 20221215
  Transmission Date: 20230113
  Serious: Yes (Hospitalization, Other)
  Sender: FDA-Public Use
  Company Number: US-INSMED, INC.-2022-01199-US

PATIENT
  Sex: Female
  Weight: 56.689 kg

DRUGS (3)
  1. ARIKAYCE [Suspect]
     Active Substance: AMIKACIN
     Indication: Mycobacterium avium complex infection
     Dosage: 590 MILLIGRAM, QD
     Route: 055
     Dates: start: 20220502, end: 20220510
  2. ARIKAYCE [Suspect]
     Active Substance: AMIKACIN
     Dosage: 590 MILLIGRAM, QD
     Route: 055
     Dates: start: 20220518, end: 20220526
  3. ARIKAYCE [Suspect]
     Active Substance: AMIKACIN
     Dosage: 590 MILLIGRAM, QOD
     Route: 055
     Dates: start: 2022, end: 2022

REACTIONS (7)
  - Oxygen saturation decreased [Unknown]
  - Hypertension [Not Recovered/Not Resolved]
  - Dyspnoea [Not Recovered/Not Resolved]
  - Myocardial necrosis marker [Not Recovered/Not Resolved]
  - Dysgeusia [Not Recovered/Not Resolved]
  - Cough [Not Recovered/Not Resolved]
  - Therapy interrupted [Unknown]

NARRATIVE: CASE EVENT DATE: 20220101
